FAERS Safety Report 8092405-5 (Version None)
Quarter: 2012Q1

REPORT INFORMATION
  Report Type: 
  Country: None (occurrence: None)
  Receive Date: 20120128
  Receipt Date: 20110831
  Transmission Date: 20120608
  Serious: No
  Sender: FDA-Public Use
  Company Number: US-ABBOTT-11P-163-0850927-00

PATIENT
  Sex: Female
  Weight: 46.308 kg

DRUGS (5)
  1. HUMIRA [Suspect]
     Indication: CROHN'S DISEASE
     Route: 058
     Dates: start: 20110822
  2. CALCIUM GLUCONATE [Concomitant]
     Indication: PRODUCT USED FOR UNKNOWN INDICATION
     Dosage: 500/400MG
  3. SYNTHROID [Concomitant]
     Indication: HYPOTHYROIDISM
     Dosage: ALTERNATES 112MCG AND 125MCG DAILY
  4. PREDNISONE TAB [Concomitant]
     Indication: CROHN'S DISEASE
  5. IRON [Concomitant]
     Indication: PRODUCT USED FOR UNKNOWN INDICATION

REACTIONS (2)
  - JOINT CREPITATION [None]
  - PAIN IN JAW [None]
